FAERS Safety Report 18340349 (Version 1)
Quarter: 2020Q4

REPORT INFORMATION
  Report Type: Spontaneous
  Country: US (occurrence: US)
  Receive Date: 20201002
  Receipt Date: 20201002
  Transmission Date: 20210113
  Serious: No
  Sender: FDA-Public Use
  Company Number: US-PERRIGO-20US003991

PATIENT
  Sex: Female
  Weight: 47.62 kg

DRUGS (4)
  1. VITAMIN C [Concomitant]
     Active Substance: ASCORBIC ACID
     Indication: NASOPHARYNGITIS
     Dosage: 1000 MG, PRN
     Route: 065
     Dates: start: 2019
  2. NICOTINE POLACRILEX [Suspect]
     Active Substance: NICOTINE
     Indication: SMOKING CESSATION THERAPY
     Dosage: 1/2 PIECE TO 4 MG, 7 TO 14 TIMES DAILY
     Route: 002
     Dates: start: 2005
  3. VITAMIN D3 [Concomitant]
     Active Substance: CHOLECALCIFEROL
     Indication: ROUTINE HEALTH MAINTENANCE
     Dosage: UNKNOWN
     Route: 065
  4. VITAMIN E                          /00110501/ [Concomitant]
     Active Substance: TOCOPHEROL
     Indication: SKIN WRINKLING
     Dosage: UNK
     Route: 065
     Dates: start: 2019

REACTIONS (4)
  - Wrong technique in product usage process [Not Recovered/Not Resolved]
  - Hiccups [Recovered/Resolved]
  - Nicotine dependence [Not Recovered/Not Resolved]
  - Underdose [Not Recovered/Not Resolved]

NARRATIVE: CASE EVENT DATE: 2005
